FAERS Safety Report 19814844 (Version 1)
Quarter: 2021Q3

REPORT INFORMATION
  Report Type: Spontaneous
  Country: US (occurrence: US)
  Receive Date: 20210910
  Receipt Date: 20210910
  Transmission Date: 20211014
  Serious: No
  Sender: FDA-Public Use
  Company Number: None

PATIENT
  Age: 42 Year
  Sex: Female

DRUGS (1)
  1. TRELEGY ELLIPTA [Suspect]
     Active Substance: FLUTICASONE FUROATE\UMECLIDINIUM BROMIDE\VILANTEROL TRIFENATATE
     Indication: BRONCHITIS
     Dosage: ?          QUANTITY:14 INHALATION(S);?
     Route: 055
     Dates: start: 20210909, end: 20210910

REACTIONS (4)
  - Inflammation [None]
  - Feeling abnormal [None]
  - Oropharyngeal pain [None]
  - Throat tightness [None]

NARRATIVE: CASE EVENT DATE: 20210910
